FAERS Safety Report 5064562-6 (Version None)
Quarter: 2006Q3

REPORT INFORMATION
  Report Type: 
  Country: None (occurrence: None)
  Receive Date: 20060706
  Receipt Date: 20060222
  Transmission Date: 20061208
  Serious: No
  Sender: FDA-Public Use
  Company Number: 200611012BWH

PATIENT
  Age: 45 Year
  Sex: Male

DRUGS (7)
  1. LEVITRA [Suspect]
     Indication: ERECTILE DYSFUNCTION
     Dosage: 20 MG, ONCE, ORAL
     Route: 048
     Dates: start: 20060221
  2. PREDNISONE [Concomitant]
  3. NORVASC [Concomitant]
  4. BENDZEPRIL [Concomitant]
  5. BENZONATATE [Concomitant]
  6. ACTOPLUS MET [Concomitant]
  7. LORAZEPAM [Concomitant]

REACTIONS (1)
  - FACE OEDEMA [None]
